FAERS Safety Report 7749359-8 (Version None)
Quarter: 2011Q3

REPORT INFORMATION
  Report Type: 
  Country: None (occurrence: None)
  Receive Date: 20110909
  Receipt Date: 20110826
  Transmission Date: 20111222
  Serious: Yes (Other)
  Sender: FDA-Public Use
  Company Number: AUR-APL-2011-02150

PATIENT
  Age: 40 Year
  Sex: Male

DRUGS (4)
  1. AVODART [Suspect]
     Indication: ALOPECIA
     Dosage: 500 MCG (500 MCG,1 IN 1 D),ORAL
     Route: 048
     Dates: start: 20080101, end: 20090101
  2. FINASTERIDE [Suspect]
     Indication: ALOPECIA
     Dosage: 5 MG(HALF TABLET) (1 IN 1 D),ORAL ; 1 MG (1 MG,1 IN 1 D),ORAL ; 2 MG (1 MG,2 IN 1 D),ORAL
     Route: 048
     Dates: start: 20060101, end: 20080101
  3. FINASTERIDE [Suspect]
     Indication: ALOPECIA
     Dosage: 5 MG(HALF TABLET) (1 IN 1 D),ORAL ; 1 MG (1 MG,1 IN 1 D),ORAL ; 2 MG (1 MG,2 IN 1 D),ORAL
     Route: 048
     Dates: start: 19980101, end: 20040101
  4. FINASTERIDE [Suspect]
     Indication: ALOPECIA
     Dosage: 5 MG(HALF TABLET) (1 IN 1 D),ORAL ; 1 MG (1 MG,1 IN 1 D),ORAL ; 2 MG (1 MG,2 IN 1 D),ORAL
     Route: 048
     Dates: start: 20040101

REACTIONS (6)
  - SKIN DISORDER [None]
  - INTENTIONAL DRUG MISUSE [None]
  - DYSGEUSIA [None]
  - WRONG TECHNIQUE IN DRUG USAGE PROCESS [None]
  - DARK CIRCLES UNDER EYES [None]
  - OVERDOSE [None]
